FAERS Safety Report 8152210-8 (Version None)
Quarter: 2012Q1

REPORT INFORMATION
  Report Type: 
  Country: None (occurrence: None)
  Receive Date: 20120214
  Receipt Date: 20120130
  Transmission Date: 20120608
  Serious: Yes (Hospitalization)
  Sender: FDA-Public Use
  Company Number: 1000028041

PATIENT
  Age: 65 Year
  Sex: Female

DRUGS (4)
  1. HYDROXYCUT (HYDROXYCUT) [Suspect]
     Indication: WEIGHT DECREASED
  2. LISINOPRIL [Concomitant]
  3. CITALOPRAM HYDROBROMIDE [Suspect]
     Indication: DEPRESSION
     Dosage: 20 MG (20 MG, 1 IN 1 D)
  4. SIMVASTATIN [Concomitant]

REACTIONS (9)
  - CEREBRAL VASOCONSTRICTION [None]
  - CEREBRAL INFARCTION [None]
  - NO THERAPEUTIC RESPONSE [None]
  - HYPERACUSIS [None]
  - PHOTOPHOBIA [None]
  - NAUSEA [None]
  - MUSCULAR WEAKNESS [None]
  - HEADACHE [None]
  - VISUAL IMPAIRMENT [None]
